FAERS Safety Report 6414564-X (Version None)
Quarter: 2009Q4

REPORT INFORMATION
  Report Type: 
  Country: None (occurrence: None)
  Receive Date: 20091021
  Receipt Date: 20091005
  Transmission Date: 20100525
  Serious: Yes (Other)
  Sender: FDA-Public Use
  Company Number: 1000009460

PATIENT
  Age: 71 Year
  Sex: Male

DRUGS (1)
  1. MILNACIPRAN     (MILNACIPRAN HYDROCHLORIDE) [Suspect]
     Dosage: (25 MG, ONCE) , ORAL
     Route: 048

REACTIONS (4)
  - FEELING COLD [None]
  - HYPERHIDROSIS [None]
  - LOSS OF CONSCIOUSNESS [None]
  - UNRESPONSIVE TO STIMULI [None]
